FAERS Safety Report 6081535-5 (Version None)
Quarter: 2009Q1

REPORT INFORMATION
  Report Type: 
  Country: None (occurrence: None)
  Receive Date: 20090213
  Receipt Date: 20090203
  Transmission Date: 20090719
  Serious: Yes (Hospitalization)
  Sender: FDA-Public Use
  Company Number: KV200900166

PATIENT
  Age: 52 Year
  Sex: Male
  Weight: 77.1 kg

DRUGS (1)
  1. MORPHINE SULFATE [Suspect]
     Indication: BACK PAIN
     Dosage: 60 MG, TID, ORAL
     Route: 048
     Dates: start: 20080613, end: 20080614

REACTIONS (5)
  - ASTHENIA [None]
  - NAUSEA [None]
  - PRODUCT QUALITY ISSUE [None]
  - PYREXIA [None]
  - VOMITING [None]
